FAERS Safety Report 4868068-6 (Version None)
Quarter: 2005Q4

REPORT INFORMATION
  Report Type: 
  Country: None (occurrence: None)
  Receive Date: 20051229
  Receipt Date: 20051219
  Transmission Date: 20060501
  Serious: Yes (Death, Congenital Anomaly)
  Sender: FDA-Public Use
  Company Number: GB-ABBOTT-05P-167-0320225-00

PATIENT
  Age: 0 Day
  Sex: Male
  Weight: 3.988 kg

DRUGS (2)
  1. EPILIM TABLETS [Suspect]
     Indication: DRUG EXPOSURE DURING PREGNANCY
     Route: 065
  2. CARBAMAZEPINE [Suspect]
     Indication: DRUG EXPOSURE DURING PREGNANCY
     Route: 065

REACTIONS (7)
  - ABDOMINAL DISTENSION [None]
  - CONGENITAL CYSTIC KIDNEY DISEASE [None]
  - CONGENITAL GENITOURINARY ABNORMALITY [None]
  - FOETAL VALPROATE SYNDROME [None]
  - HYPOSPADIAS [None]
  - SKULL MALFORMATION [None]
  - SYNDACTYLY [None]
